FAERS Safety Report 8254780-8 (Version None)
Quarter: 2012Q2

REPORT INFORMATION
  Report Type: 
  Country: None (occurrence: None)
  Receive Date: 20120403
  Receipt Date: 20120327
  Transmission Date: 20120825
  Serious: Yes (Other)
  Sender: FDA-Public Use
  Company Number: PHHY2012MX027597

PATIENT
  Sex: Female

DRUGS (4)
  1. ZOLEDRONOC ACID [Suspect]
     Indication: OSTEOPOROSIS
     Dosage: 5 MG, UNK
     Route: 042
     Dates: start: 20120321
  2. TENORMIN [Concomitant]
  3. PROPAFENONE HCL [Concomitant]
  4. COUMADIN [Concomitant]

REACTIONS (11)
  - PALPITATIONS [None]
  - HYPERHIDROSIS [None]
  - INSOMNIA [None]
  - GASTRITIS [None]
  - ABDOMINAL PAIN UPPER [None]
  - FATIGUE [None]
  - TACHYCARDIA [None]
  - CHILLS [None]
  - NAUSEA [None]
  - DYSPNOEA [None]
  - FEELING ABNORMAL [None]
